FAERS Safety Report 13694613 (Version 1)
Quarter: 2017Q2

REPORT INFORMATION
  Report Type: Report from Study
  Country: BR (occurrence: BR)
  Receive Date: 20170627
  Receipt Date: 20170627
  Transmission Date: 20170830
  Serious: Yes (Death)
  Sender: FDA-Public Use
  Company Number: BR-EMD SERONO-E2B_80072803

PATIENT
  Age: 5 Year
  Sex: Male

DRUGS (1)
  1. SAIZEN [Suspect]
     Active Substance: SOMATROPIN
     Indication: PRODUCT USED FOR UNKNOWN INDICATION
     Dosage: 36 IU
     Route: 058
     Dates: start: 20170207

REACTIONS (1)
  - Death [Fatal]

NARRATIVE: CASE EVENT DATE: 201706
